FAERS Safety Report 5356139-X (Version None)
Quarter: 2007Q2

REPORT INFORMATION
  Report Type: 
  Country: None (occurrence: None)
  Receive Date: 20070613
  Receipt Date: 20070601
  Transmission Date: 20071010
  Serious: No
  Sender: FDA-Public Use
  Company Number: US-PFIZER INC-2007034932

PATIENT

DRUGS (1)
  1. SUTENT [Suspect]

REACTIONS (1)
  - NO ADVERSE EFFECT [None]
